FAERS Safety Report 7534742-6 (Version None)
Quarter: 2011Q2

REPORT INFORMATION
  Report Type: 
  Country: None (occurrence: None)
  Receive Date: 20110609
  Receipt Date: 20110608
  Transmission Date: 20111010
  Serious: Yes (Other)
  Sender: FDA-Public Use
  Company Number: BR-BRISTOL-MYERS SQUIBB COMPANY-13763933

PATIENT
  Age: 14 Year
  Sex: Male

DRUGS (4)
  1. METHOTREXATE [Concomitant]
     Dates: start: 20050808
  2. NAPROXEN [Concomitant]
     Dates: start: 20041004
  3. ONDANSETRON [Concomitant]
     Dates: start: 20060710
  4. ABATACEPT [Suspect]
     Indication: JUVENILE ARTHRITIS
     Route: 042
     Dates: start: 20050905, end: 20070426

REACTIONS (2)
  - TEMPORAL LOBE EPILEPSY [None]
  - MULTIPLE SCLEROSIS [None]
